FAERS Safety Report 5781449-1 (Version None)
Quarter: 2008Q2

REPORT INFORMATION
  Report Type: 
  Country: None (occurrence: None)
  Receive Date: 20080623
  Receipt Date: 20080612
  Transmission Date: 20081010
  Serious: Yes (Hospitalization)
  Sender: FDA-Public Use
  Company Number: DK-JNJFOC-20080303685

PATIENT
  Sex: Female

DRUGS (11)
  1. REMICADE [Suspect]
     Route: 042
  2. REMICADE [Suspect]
     Indication: RHEUMATOID ARTHRITIS
     Route: 042
  3. HUMIRA [Suspect]
     Indication: RHEUMATOID ARTHRITIS
     Route: 058
  4. ENBREL [Suspect]
     Indication: RHEUMATOID ARTHRITIS
     Route: 058
  5. METHOTREXATE [Concomitant]
     Indication: RHEUMATOID ARTHRITIS
     Route: 058
  6. FOLIC ACID [Concomitant]
     Route: 048
  7. COZAAR [Concomitant]
  8. ATENOLOL [Concomitant]
  9. VOLTARAN [Concomitant]
  10. DOLOL [Concomitant]
  11. PINEX [Concomitant]

REACTIONS (4)
  - BASAL CELL CARCINOMA [None]
  - COLON CANCER [None]
  - DRUG INEFFECTIVE [None]
  - HODGKIN'S DISEASE [None]
